FAERS Safety Report 25374900 (Version 4)
Quarter: 2025Q4

REPORT INFORMATION
  Report Type: Spontaneous
  Country: US (occurrence: US)
  Receive Date: 20250529
  Receipt Date: 20251124
  Transmission Date: 20260117
  Serious: Yes (Hospitalization, Other)
  Sender: CYCLE PHARMACEUTICALS
  Company Number: US-CYCLE PHARMACEUTICALS LTD-2025-CYC-000093

PATIENT

DRUGS (5)
  1. NITYR [Suspect]
     Active Substance: NITISINONE
     Indication: Tyrosinaemia
     Dosage: 1 MG, QD
     Route: 065
  2. NITYR [Suspect]
     Active Substance: NITISINONE
     Dosage: 1 MG, QD
     Route: 048
     Dates: start: 202506
  3. NITYR [Suspect]
     Active Substance: NITISINONE
     Dosage: 1 MG, QD
     Route: 048
     Dates: start: 202505
  4. AUGMENTIN [Concomitant]
     Active Substance: AMOXICILLIN\CLAVULANATE POTASSIUM
     Indication: Product used for unknown indication
     Dosage: 125-31.25/SUSP RECON
     Route: 065
  5. SIROLIMUS [Concomitant]
     Active Substance: SIROLIMUS
     Indication: Product used for unknown indication
     Dosage: 0.5 MG
     Route: 065

REACTIONS (18)
  - Surgery [Unknown]
  - Laryngeal dyskinesia [Unknown]
  - Weight decreased [Unknown]
  - Muscle twitching [Unknown]
  - Nausea [Unknown]
  - Vomiting [Unknown]
  - Viral infection [Unknown]
  - Product prescribing issue [Unknown]
  - Decreased appetite [Unknown]
  - Pyrexia [Unknown]
  - Pigmentation disorder [Unknown]
  - Hypophagia [Not Recovered/Not Resolved]
  - Urine flow decreased [Not Recovered/Not Resolved]
  - Dry skin [Not Recovered/Not Resolved]
  - Diarrhoea [Recovered/Resolved]
  - Rash [Unknown]
  - Liver disorder [Unknown]
  - Muscular weakness [Unknown]

NARRATIVE: CASE EVENT DATE: 20250601
